FAERS Safety Report 6937438-4 (Version None)
Quarter: 2010Q3

REPORT INFORMATION
  Report Type: 
  Country: None (occurrence: None)
  Receive Date: 20100823
  Receipt Date: 20100823
  Transmission Date: 20110219
  Serious: Yes (Other)
  Sender: FDA-Public Use
  Company Number: None

PATIENT
  Age: 65 Year
  Sex: Female
  Weight: 69.8539 kg

DRUGS (4)
  1. BONIVA [Suspect]
     Dosage: 1 Q MONTH PO
     Route: 048
  2. TYLENOL W/ CODEINE NO. 3 [Concomitant]
  3. ALEVE [Concomitant]
  4. CHIROPACTOR CHOR INJECTION [Concomitant]

REACTIONS (5)
  - BACK PAIN [None]
  - CHEST PAIN [None]
  - FALL [None]
  - GAIT DISTURBANCE [None]
  - PAIN IN EXTREMITY [None]
